FAERS Safety Report 19270624 (Version 1)
Quarter: 2021Q2

REPORT INFORMATION
  Report Type: Other
  Country: CN (occurrence: CN)
  Receive Date: 20210518
  Receipt Date: 20210518
  Transmission Date: 20210717
  Serious: Yes (Other)
  Sender: FDA-Public Use
  Company Number: CN-ROCHE-2824424

PATIENT

DRUGS (4)
  1. CIS?PLATINUM [Suspect]
     Active Substance: CISPLATIN
     Dosage: ON WEEK 7?12
     Route: 065
  2. DOCETAXEL. [Suspect]
     Active Substance: DOCETAXEL
     Indication: CERVIX CARCINOMA
     Dosage: ON WEEK 1 AND WEEK 4
     Route: 065
  3. BEVACIZUMAB. [Suspect]
     Active Substance: BEVACIZUMAB
     Indication: CERVIX CARCINOMA
     Dosage: ON WEEK 1 AND WEEK 4
     Route: 065
  4. CIS?PLATINUM [Suspect]
     Active Substance: CISPLATIN
     Indication: CERVIX CARCINOMA
     Dosage: ON WEEK 1 AND WEEK4
     Route: 065

REACTIONS (2)
  - Blood disorder [Unknown]
  - Gastrointestinal disorder [Unknown]
